FAERS Safety Report 15429059 (Version 5)
Quarter: 2019Q2

REPORT INFORMATION
  Report Type: Spontaneous
  Country: US (occurrence: US)
  Receive Date: 20180926
  Receipt Date: 20190611
  Transmission Date: 20190711
  Serious: Yes (Other)
  Sender: FDA-Public Use
  Company Number: US-PFIZER INC-2018387402

PATIENT
  Age: 53 Year
  Sex: Male

DRUGS (3)
  1. LYRICA [Suspect]
     Active Substance: PREGABALIN
     Indication: BACK PAIN
     Dosage: 300 MG, 1X/DAY (150 MG CAPSULE, TAKE 2 CAPSULES EVERY DAY AT BEDTIME FOR 90 DAYS)
     Route: 048
  2. VIAGRA [Concomitant]
     Active Substance: SILDENAFIL CITRATE
  3. SKELAXIN [METAXALONE] [Concomitant]

REACTIONS (8)
  - Bone density decreased [Unknown]
  - Fatigue [Unknown]
  - Off label use [Unknown]
  - Tremor [Unknown]
  - Pollakiuria [Unknown]
  - Visual acuity reduced [Unknown]
  - Product use issue [Unknown]
  - Parkinson^s disease [Unknown]
